FAERS Safety Report 16694459 (Version 1)
Quarter: 2019Q3

REPORT INFORMATION
  Report Type: Spontaneous
  Country: DE (occurrence: DE)
  Receive Date: 20190812
  Receipt Date: 20190812
  Transmission Date: 20191004
  Serious: Yes (Hospitalization, Other)
  Sender: FDA-Public Use
  Company Number: DE-NOVOPROD-676925

PATIENT
  Age: 82 Year
  Sex: Male

DRUGS (19)
  1. RIVAROXABAN [Concomitant]
     Active Substance: RIVAROXABAN
     Dosage: 15 MG, QD (1-0-0-0)
     Route: 065
  2. VALSARTAN. [Concomitant]
     Active Substance: VALSARTAN
     Dosage: 160 MG, BID (80 MG, 2-0-2-0)
     Route: 065
  3. PANTOPRAZOLE [Concomitant]
     Active Substance: PANTOPRAZOLE
     Dosage: 40 MG, QD ((1-0-0-0)
     Route: 065
  4. MACROGOL [Concomitant]
     Active Substance: POLYETHYLENE GLYCOLS
     Dosage: 1-0-0-0, MG
     Route: 065
  5. VALPROINSAEURE [Concomitant]
     Active Substance: VALPROIC ACID
     Dosage: 600 MG, QD (300 MG, 2-0-0-0)
     Route: 065
  6. CLOPIDOGREL [Concomitant]
     Active Substance: CLOPIDOGREL BISULFATE
     Dosage: 75 MG, QD (1-0-0-0)
     Route: 065
  7. METAMIZOLE [Concomitant]
     Active Substance: METAMIZOLE
     Dosage: 500 MG (AS REQUIRED UP TO 6/ DAY)
     Route: 065
  8. CITALOPRAM [Concomitant]
     Active Substance: CITALOPRAM HYDROBROMIDE
     Dosage: 20 MG, QD (1-0-0-0)
     Route: 065
  9. TAMSULOSIN [Concomitant]
     Active Substance: TAMSULOSIN
     Dosage: 0.4 MG, QD (1-0-0-0)
     Route: 065
  10. SIMVASTATIN. [Concomitant]
     Active Substance: SIMVASTATIN
     Dosage: 20 MG, QD (0-0-1-0)
     Route: 065
  11. EPLERENONE. [Concomitant]
     Active Substance: EPLERENONE
     Dosage: 50 MG, QD(2-0-0-0)
     Route: 065
  12. AMLODIPINE [Concomitant]
     Active Substance: AMLODIPINE BESYLATE
     Dosage: 5 MG, BID (1-0-1-0)
     Route: 065
  13. METOPROLOL. [Suspect]
     Active Substance: METOPROLOL
     Indication: PRODUCT USED FOR UNKNOWN INDICATION
     Dosage: 95 MG, BID (1-0-1-0)
     Route: 065
  14. TRAMADOL. [Concomitant]
     Active Substance: TRAMADOL
     Dosage: 100 MG, BID ((1-0-1-0))
     Route: 065
  15. DIGITOXIN [Suspect]
     Active Substance: DIGITOXIN
     Indication: PRODUCT USED FOR UNKNOWN INDICATION
     Dosage: 0.07 MG, QD ((1-0-0-0)
     Route: 065
  16. TORASEMID [Concomitant]
     Active Substance: TORSEMIDE
     Dosage: 10 MG, (2-2-0-0)
     Route: 065
  17. LEVEMIR [Suspect]
     Active Substance: INSULIN DETEMIR
     Indication: PRODUCT USED FOR UNKNOWN INDICATION
     Dosage: NOT KNOWN IU, ACCORDING TO PLAN.
     Route: 065
  18. INSULIN GLULISINE [Suspect]
     Active Substance: INSULIN GLULISINE
     Indication: PRODUCT USED FOR UNKNOWN INDICATION
     Dosage: UNK (IE)
     Route: 065
  19. IBANDRONIC ACID. [Concomitant]
     Active Substance: IBANDRONIC ACID
     Dosage: 3 MG (1X QUARTERLY)
     Route: 042

REACTIONS (4)
  - Depressed level of consciousness [Unknown]
  - General physical health deterioration [Unknown]
  - Hypoglycaemia [Unknown]
  - Bradycardia [Unknown]
